FAERS Safety Report 17791489 (Version 3)
Quarter: 2020Q2

REPORT INFORMATION
  Report Type: Report from Study
  Country: US (occurrence: US)
  Receive Date: 20200515
  Receipt Date: 20200605
  Transmission Date: 20200714
  Serious: Yes (Other)
  Sender: FDA-Public Use
  Company Number: US-ROCHE-2577552

PATIENT
  Sex: Male

DRUGS (5)
  1. ESBRIET [Suspect]
     Active Substance: PIRFENIDONE
     Indication: IDIOPATHIC PULMONARY FIBROSIS
     Dosage: IN WEEK 4, ON DAY 3; TAKING 3, 3 TIMES A DAY ;ONGOING: YES
     Route: 048
  2. OXYCODONE [Concomitant]
     Active Substance: OXYCODONE
     Indication: PAIN
     Dosage: PRN
     Route: 065
  3. ASPIRIN [ACETYLSALICYLIC ACID] [Concomitant]
     Active Substance: ASPIRIN
     Dosage: IN MORNING.
     Route: 065
  4. PLAVIX [Concomitant]
     Active Substance: CLOPIDOGREL BISULFATE
  5. ESBRIET [Suspect]
     Active Substance: PIRFENIDONE
     Indication: IDIOPATHIC PULMONARY FIBROSIS
     Route: 048
     Dates: start: 20200227

REACTIONS (19)
  - Abdominal discomfort [Recovered/Resolved with Sequelae]
  - Blood pressure decreased [Unknown]
  - Dysphagia [Unknown]
  - Cough [Unknown]
  - Malaise [Unknown]
  - Peripheral swelling [Unknown]
  - Alopecia [Unknown]
  - Chest pain [Unknown]
  - Flatulence [Unknown]
  - Loss of consciousness [Unknown]
  - Dyspnoea [Unknown]
  - Increased tendency to bruise [Unknown]
  - Headache [Recovered/Resolved]
  - Abdominal discomfort [Unknown]
  - Coagulopathy [Unknown]
  - Back pain [Unknown]
  - Pain [Unknown]
  - Fatigue [Unknown]
  - Dizziness [Unknown]
